FAERS Safety Report 9604615 (Version 4)
Quarter: 2014Q2

REPORT INFORMATION
  Report Type: Spontaneous
  Country: US (occurrence: US)
  Receive Date: 20131008
  Receipt Date: 20140429
  Transmission Date: 20141212
  Serious: Yes (Other)
  Sender: FDA-Public Use
  Company Number: US-BAYER-2013-121440

PATIENT
  Age: 29 Year
  Sex: Female
  Weight: 53.88 kg

DRUGS (1)
  1. MIRENA [Suspect]
     Indication: CONTRACEPTION
     Dosage: 20 MCG/24HR, CONT
     Route: 015
     Dates: start: 20120921

REACTIONS (4)
  - Embedded device [Not Recovered/Not Resolved]
  - Device difficult to use [None]
  - Pregnancy with contraceptive device [Not Recovered/Not Resolved]
  - Drug ineffective [None]
